FAERS Safety Report 17486900 (Version 4)
Quarter: 2020Q2

REPORT INFORMATION
  Report Type: Spontaneous
  Country: JP (occurrence: JP)
  Receive Date: 20200303
  Receipt Date: 20200403
  Transmission Date: 20200713
  Serious: Yes (Hospitalization, Other)
  Sender: FDA-Public Use
  Company Number: JP-UCBSA-2020008427

PATIENT
  Age: 5 Year
  Sex: Female
  Weight: 15 kg

DRUGS (10)
  1. VIMPAT [Suspect]
     Active Substance: LACOSAMIDE
     Dosage: 60 MILLIGRAM, 2X/DAY (BID)
     Dates: start: 20191203, end: 20191204
  2. CLONAZEPAM. [Concomitant]
     Active Substance: CLONAZEPAM
     Indication: EPILEPSY
     Dosage: UNK
     Route: 048
  3. MAGNESIUM OXIDE. [Concomitant]
     Active Substance: MAGNESIUM OXIDE
     Indication: CONSTIPATION
     Dosage: 0.2 GRAM
     Route: 048
     Dates: start: 2019
  4. LANDSEN [Concomitant]
     Active Substance: CLONAZEPAM
     Indication: EPILEPSY
     Route: 048
     Dates: start: 201902
  5. MIYA-BM [Concomitant]
     Active Substance: CLOSTRIDIUM BUTYRICUM SPORES STRAIN M-55
     Indication: DYSPEPSIA
     Dosage: 0.33 GRAM
     Route: 048
  6. VIMPAT [Suspect]
     Active Substance: LACOSAMIDE
     Indication: EPILEPSY
     Dosage: UNK
     Route: 048
     Dates: start: 20191127
  7. VIMPAT [Suspect]
     Active Substance: LACOSAMIDE
     Dosage: UNK
     Route: 048
     Dates: start: 20191129
  8. VIMPAT [Suspect]
     Active Substance: LACOSAMIDE
     Dosage: 40 MILLIGRAM, 2X/DAY (BID)
     Dates: start: 20191202, end: 20191202
  9. E KEPPRA [Concomitant]
     Active Substance: LEVETIRACETAM
     Indication: EPILEPSY
     Dosage: 275 MILLIGRAM, 2X/DAY (BID)
     Route: 048
     Dates: start: 201903
  10. TRICLORYL [Concomitant]
     Active Substance: TRICLOFOS SODIUM
     Indication: INSOMNIA
     Dosage: 7 MILLILITER
     Route: 048
     Dates: start: 201903

REACTIONS (2)
  - Sinus arrest [Recovered/Resolved]
  - Off label use [Unknown]

NARRATIVE: CASE EVENT DATE: 20191202
